FAERS Safety Report 10890801 (Version 3)
Quarter: 2015Q2

REPORT INFORMATION
  Report Type: Other
  Country: US (occurrence: US)
  Receive Date: 20150305
  Receipt Date: 20150407
  Transmission Date: 20150821
  Serious: Yes (Hospitalization, Other)
  Sender: FDA-Public Use
  Company Number: US-UNITED THERAPEUTICS-UNT-2015-002306

PATIENT
  Age: 84 Year
  Sex: Male
  Weight: 74.83 kg

DRUGS (4)
  1. WARFARIN [Concomitant]
     Active Substance: WARFARIN
     Indication: PRODUCT USED FOR UNKNOWN INDICATION
  2. TYVASO [Suspect]
     Active Substance: TREPROSTINIL
     Indication: PULMONARY HYPERTENSION
     Dosage: 18-54 MCG, QID
     Dates: start: 20141106
  3. TYVASO [Suspect]
     Active Substance: TREPROSTINIL
     Dosage: 18 TO 54 ?G, QID
  4. ADCIRCA [Concomitant]
     Active Substance: TADALAFIL
     Indication: PRODUCT USED FOR UNKNOWN INDICATION

REACTIONS (5)
  - Anaemia [Not Recovered/Not Resolved]
  - Therapy cessation [Recovered/Resolved]
  - Upper gastrointestinal haemorrhage [Unknown]
  - Throat irritation [Unknown]
  - Cough [Recovered/Resolved]

NARRATIVE: CASE EVENT DATE: 201502
